FAERS Safety Report 6546875-1 (Version None)
Quarter: 2010Q1

REPORT INFORMATION
  Report Type: 
  Country: None (occurrence: None)
  Receive Date: 20100114
  Receipt Date: 20091022
  Transmission Date: 20100710
  Serious: No
  Sender: FDA-Public Use
  Company Number: 2009BM000274

PATIENT
  Age: 13 Year
  Sex: Male
  Weight: 66 kg

DRUGS (1)
  1. KUVAN [Suspect]
     Indication: PHENYLKETONURIA
     Dosage: 20 MG/KG;QD;PO
     Route: 048
     Dates: start: 20091010, end: 20091015

REACTIONS (2)
  - RETCHING [None]
  - VOMITING [None]
